FAERS Safety Report 6145556-6 (Version None)
Quarter: 2009Q2

REPORT INFORMATION
  Report Type: 
  Country: None (occurrence: None)
  Receive Date: 20090402
  Receipt Date: 20090319
  Transmission Date: 20091009
  Serious: Yes (Hospitalization, Other)
  Sender: FDA-Public Use
  Company Number: 2009S1005288

PATIENT
  Age: 52 Year
  Sex: Male
  Weight: 90 kg

DRUGS (7)
  1. BEZAFIBRATE (BEZAFIBRATE) (400 MG) [Suspect]
     Indication: HYPERCHOLESTEROLAEMIA
     Dosage: 400 MG; DAILY; ORAL
     Route: 048
     Dates: end: 20090225
  2. DICLAC (DICLOFENAC) [Suspect]
     Indication: PAIN
     Dosage: ORAL
     Route: 048
     Dates: start: 20070101, end: 20090225
  3. DELMUNO (UNIMAX) (5 MG) [Suspect]
     Indication: HYPERTENSION
     Dosage: 5 MG; ORAL
     Route: 048
     Dates: end: 20090225
  4. AQUAPHOR (XIPAMIDE) (10 MG) [Suspect]
     Indication: HYPERTENSION
     Dosage: 10 MG; ORAL
     Route: 048
     Dates: end: 20090225
  5. ALLOPURINOL [Concomitant]
  6. TRAMADOL HCL [Concomitant]
  7. OMEP [Concomitant]

REACTIONS (4)
  - DEHYDRATION [None]
  - DRUG INTERACTION [None]
  - GASTRIC ULCER HELICOBACTER [None]
  - RENAL FAILURE ACUTE [None]
